FAERS Safety Report 8246570-7 (Version None)
Quarter: 2012Q1

REPORT INFORMATION
  Report Type: 
  Country: None (occurrence: None)
  Receive Date: 20120330
  Receipt Date: 20120329
  Transmission Date: 20120608
  Serious: Yes (Death, Other)
  Sender: FDA-Public Use
  Company Number: PHHY2012BE026989

PATIENT
  Sex: Male

DRUGS (8)
  1. AVELOX [Suspect]
     Indication: PNEUMONIA
     Dates: start: 20120322
  2. ASPIRIN [Concomitant]
  3. ZOLEDRONOC ACID [Suspect]
     Indication: OSTEOPOROSIS
     Dosage: 5 MG, UNK
     Route: 042
     Dates: start: 20120327
  4. DIAZEPAM [Concomitant]
  5. SPIRIVA [Concomitant]
  6. DUOVENT [Concomitant]
  7. HMG COA REDUCTASE INHIBITORS [Concomitant]
  8. SYMBICORT [Concomitant]

REACTIONS (4)
  - CARDIAC HYPERTROPHY [None]
  - HEPATIC STEATOSIS [None]
  - LIVER DISORDER [None]
  - SUDDEN DEATH [None]
